FAERS Safety Report 18322442 (Version 1)
Quarter: 2020Q3

REPORT INFORMATION
  Report Type: Spontaneous
  Country: GB (occurrence: GB)
  Receive Date: 20200929
  Receipt Date: 20200929
  Transmission Date: 20201103
  Serious: Yes (Hospitalization)
  Sender: FDA-Public Use
  Company Number: GB-TEVA-2020-GB-1831459

PATIENT
  Age: 78 Year
  Sex: Male

DRUGS (25)
  1. WARFARIN [Suspect]
     Active Substance: WARFARIN
     Dosage: WAS ON 7MG TUES, THURS, SAT AND SUN AND 6MG MON WED AND FRI. TARGET INR 2?3 PRE?ADMISSION
     Route: 048
  2. PARACETAMOL [Concomitant]
     Active Substance: ACETAMINOPHEN
     Dosage: UNIT DOSE  : 4000 MILLIGRAM
  3. ZOMORPH [Concomitant]
     Active Substance: MORPHINE SULFATE
     Dosage: UNIT DOSE : 20 MICROGRAM
  4. FERROUS FUMARATE [Concomitant]
     Active Substance: FERROUS FUMARATE
     Dosage: UNIT DOSE : 420 MG
  5. CAPASAL [Concomitant]
     Dosage: APPLY EACH DAY, UNIT DOSE : 1 DOSAGE FORMS
  6. CASSIA [Concomitant]
     Dosage: 15 MILLIGRAM DAILY; AT NIGHT
  7. BUMETANIDE. [Concomitant]
     Active Substance: BUMETANIDE
     Dosage: UNIT DOSE : 2 MG
  8. TAMSULOSIN [Concomitant]
     Active Substance: TAMSULOSIN
     Dosage: UNIT DOSE : 400 MICROGRAM
  9. CONSTELLA [Concomitant]
     Active Substance: LINACLOTIDE
     Dosage: UNIT DOSE  : 290 MICROGRAM
  10. ATORVASTATIN [Concomitant]
     Active Substance: ATORVASTATIN
     Dosage: 80 MILLIGRAM DAILY; AT NIGHT
  11. LINAGLIPTIN [Concomitant]
     Active Substance: LINAGLIPTIN
     Dosage: UNIT DOSE : 5 MILLIGRAM
  12. TRIMBOW [Concomitant]
     Active Substance: BECLOMETHASONE DIPROPIONATE\FORMOTEROL FUMARATE\GLYCOPYRROLATE
     Dosage: UNIT DOSE : 4 DOSAGE FORMS
     Route: 055
  13. SPIRONOLACTONE. [Concomitant]
     Active Substance: SPIRONOLACTONE
     Dosage: UNIT DOSE : 25 MG
  14. BUMETANIDE. [Concomitant]
     Active Substance: BUMETANIDE
     Dosage: UNIT DOSE : 10 MG
  15. GLYCERYL TRINITRATE [Concomitant]
     Active Substance: NITROGLYCERIN
     Indication: CHEST PAIN
     Dosage: 1 PUFF. IF NO BETTER CAN RPT AFTER 5 MIN, RPT ONCE MORE IF NO BETTER AFTER 15 MIN CALL AMBULANCE
     Route: 060
  16. LANSOPRAZOLE. [Concomitant]
     Active Substance: LANSOPRAZOLE
     Dosage: 120 MILLIGRAM DAILY; EACH MORNING AND AT NIGHT, UNIT DOSE : 60 MG
  17. NICORANDIL [Concomitant]
     Active Substance: NICORANDIL
     Dosage: UNIT DOSE  : 40 MG
  18. LAXIDO [Concomitant]
     Active Substance: POLYETHYLENE GLYCOL 3350\POTASSIUM CHLORIDE\SODIUM BICARBONATE\SODIUM CHLORIDE
     Dosage: UNIT DOSE : 3 DOSAGE FORMS
  19. SALBUTAMOL [Concomitant]
     Active Substance: ALBUTEROL
     Dosage: UNIT DOSE : 2 DOSAGE FORMS
     Route: 055
  20. CHEMYDUR XL [Concomitant]
     Active Substance: ISOSORBIDE MONONITRATE
     Dosage: 90 MILLIGRAM DAILY; IN THE MORNING
  21. OILATUM CREAM [Concomitant]
     Dosage: APPLY WHEN REQUIRED
  22. UNIPHYLLIN CONTINUS [Concomitant]
     Active Substance: THEOPHYLLINE ANHYDROUS
     Dosage: 200 MILLIGRAM DAILY; AT NIGHT
  23. ZOMORPH [Concomitant]
     Active Substance: MORPHINE SULFATE
     Dosage: UNIT DOSE  : 60 MICROGRAM
  24. DOCUSATE [Concomitant]
     Active Substance: DOCUSATE
     Dosage: 800 MILLIGRAM DAILY; EVERY MORNING AND NIGHT, UNIT DOSE : 400 MG
  25. RANOLAZINE. [Concomitant]
     Active Substance: RANOLAZINE
     Dosage: UNIT DOSE : 1000 MILLIGRAM

REACTIONS (1)
  - Haematuria [Recovered/Resolved]

NARRATIVE: CASE EVENT DATE: 20200131
